FAERS Safety Report 26117975 (Version 1)
Quarter: 2025Q4

REPORT INFORMATION
  Report Type: Spontaneous
  Country: GB (occurrence: GB)
  Receive Date: 20251203
  Receipt Date: 20251203
  Transmission Date: 20260118
  Serious: Yes (Other)
  Sender: GILEAD
  Company Number: GB-GILEAD-2025-0738800

PATIENT
  Age: 60 Year
  Sex: Female

DRUGS (1)
  1. TECARTUS [Suspect]
     Active Substance: BREXUCABTAGENE AUTOLEUCEL
     Indication: Mantle cell lymphoma
     Dosage: UNK
     Route: 065

REACTIONS (2)
  - Optic neuritis [Unknown]
  - Blindness [Unknown]
